FAERS Safety Report 9390407 (Version 1)
Quarter: 2013Q3

REPORT INFORMATION
  Report Type: Spontaneous
  Country: US (occurrence: None)
  Receive Date: 20130701
  Receipt Date: 20130701
  Transmission Date: 20140515
  Serious: Yes (Other)
  Sender: FDA-Public Use
  Company Number: IPC201306-000242

PATIENT
  Age: 56 Year
  Sex: Female

DRUGS (1)
  1. METFORMIN HYDROCHLORIDE [Suspect]

REACTIONS (9)
  - Lactic acidosis [None]
  - Pulseless electrical activity [None]
  - Septic shock [None]
  - Pyelonephritis [None]
  - Tachycardia [None]
  - Renal failure acute [None]
  - Haemodialysis [None]
  - Hyperventilation [None]
  - Intentional overdose [None]
